FAERS Safety Report 15757114 (Version 1)
Quarter: 2018Q4

REPORT INFORMATION
  Report Type: Spontaneous
  Country: FR (occurrence: FR)
  Receive Date: 20181224
  Receipt Date: 20181224
  Transmission Date: 20190205
  Serious: Yes (Hospitalization)
  Sender: FDA-Public Use
  Company Number: FR-TEVA-2018-FR-990064

PATIENT
  Age: 21 Year
  Sex: Female

DRUGS (4)
  1. TEGRETOL [Suspect]
     Active Substance: CARBAMAZEPINE
     Dosage: 600 MILLIGRAM DAILY;
     Route: 048
     Dates: start: 20181005, end: 20181112
  2. FOLINORAL [Concomitant]
     Active Substance: LEUCOVORIN CALCIUM
     Route: 048
     Dates: start: 20180905, end: 20181105
  3. LANSOPRAZOLE. [Suspect]
     Active Substance: LANSOPRAZOLE
     Dosage: 15 MILLIGRAM DAILY;
     Route: 048
     Dates: start: 20180905, end: 20181111
  4. BACTRIM [Suspect]
     Active Substance: SULFAMETHOXAZOLE\TRIMETHOPRIM
     Indication: INFECTION PROPHYLAXIS
     Dosage: 400 MICROGRAM DAILY;
     Route: 048
     Dates: start: 20180905, end: 20181106

REACTIONS (1)
  - Drug reaction with eosinophilia and systemic symptoms [Recovering/Resolving]

NARRATIVE: CASE EVENT DATE: 20181102
